FAERS Safety Report 16243433 (Version 6)
Quarter: 2019Q4

REPORT INFORMATION
  Report Type: Spontaneous
  Country: US (occurrence: US)
  Receive Date: 20190426
  Receipt Date: 20191106
  Transmission Date: 20200122
  Serious: Yes (Hospitalization, Other)
  Sender: FDA-Public Use
  Company Number: US-PFIZER INC-2019173514

PATIENT
  Age: 64 Year
  Sex: Female
  Weight: 59 kg

DRUGS (5)
  1. XELJANZ XR [Suspect]
     Active Substance: TOFACITINIB CITRATE
     Dosage: 11 MG, EVERY 2 HOURS (TAKE 1 TABLET EVERY 2 HOURS)
  2. PREDNISONE. [Concomitant]
     Active Substance: PREDNISONE
     Dosage: 75 MG, DAILY
  3. XELJANZ XR [Suspect]
     Active Substance: TOFACITINIB CITRATE
     Indication: RHEUMATOID ARTHRITIS
     Dosage: 11 MG, DAILY
     Route: 048
     Dates: start: 20190412
  4. XELJANZ XR [Suspect]
     Active Substance: TOFACITINIB CITRATE
     Indication: BLOOD URINE PRESENT
     Dosage: 120 MG, 1X/DAY
  5. HUMIRA [Concomitant]
     Active Substance: ADALIMUMAB
     Dosage: UNK

REACTIONS (6)
  - Headache [Recovered/Resolved]
  - Urethral haemorrhage [Recovered/Resolved]
  - Overdose [Unknown]
  - Nephrolithiasis [Recovered/Resolved]
  - Nausea [Unknown]
  - Mobility decreased [Recovered/Resolved]
